FAERS Safety Report 19391981 (Version 2)
Quarter: 2021Q2

REPORT INFORMATION
  Report Type: Report from Study
  Country: None (occurrence: US)
  Receive Date: 20210609
  Receipt Date: 20210622
  Transmission Date: 20210717
  Serious: Yes (Hospitalization)
  Sender: FDA-Public Use
  Company Number: US-ABBVIE-21K-163-3940841-00

PATIENT
  Age: 27 Year
  Sex: Male
  Weight: 54.48 kg

DRUGS (1)
  1. HUMIRA [Suspect]
     Active Substance: ADALIMUMAB
     Indication: CROHN^S DISEASE
     Route: 058
     Dates: start: 202101, end: 202104

REACTIONS (4)
  - Asthenia [Not Recovered/Not Resolved]
  - Chills [Recovering/Resolving]
  - Cardiovascular disorder [Recovering/Resolving]
  - Crohn^s disease [Not Recovered/Not Resolved]

NARRATIVE: CASE EVENT DATE: 2021
